FAERS Safety Report 7667300-3 (Version None)
Quarter: 2011Q3

REPORT INFORMATION
  Report Type: 
  Country: None (occurrence: None)
  Receive Date: 20110806
  Receipt Date: 20110405
  Transmission Date: 20111222
  Serious: No
  Sender: FDA-Public Use
  Company Number: US-ABBOTT-11P-163-0717151-00

PATIENT
  Sex: Female
  Weight: 86.26 kg

DRUGS (3)
  1. SYNTHROID [Concomitant]
     Indication: HYPOTHYROIDISM
     Route: 048
  2. NIASPAN [Suspect]
     Indication: BLOOD TRIGLYCERIDES INCREASED
     Dosage: 500 MG AT HOUR OF SLEEP
     Dates: start: 20110301, end: 20110301
  3. ENALAPRIL MALEATE AND HYDROCHLOROTHIAZIDE [Concomitant]
     Indication: HYPERTENSION
     Dosage: 10/25 MG ONCE DAILY
     Route: 048

REACTIONS (5)
  - DYSPNOEA [None]
  - HYPERHIDROSIS [None]
  - CHEST DISCOMFORT [None]
  - BACK PAIN [None]
  - MIGRAINE [None]
